FAERS Safety Report 5360075-2 (Version None)
Quarter: 2007Q2

REPORT INFORMATION
  Report Type: 
  Country: None (occurrence: None)
  Receive Date: 20070618
  Receipt Date: 20070131
  Transmission Date: 20071010
  Serious: No
  Sender: FDA-Public Use
  Company Number: US-ASTRAZENECA-2007UW02085

PATIENT
  Age: 56 Year
  Sex: Female
  Weight: 71.7 kg

DRUGS (1)
  1. FASLODEX [Suspect]
     Indication: BREAST CANCER FEMALE
     Dosage: 250 MG 1 X 5.0 ML
     Route: 030

REACTIONS (2)
  - CONSTIPATION [None]
  - FLATULENCE [None]
